FAERS Safety Report 7951231-5 (Version None)
Quarter: 2011Q4

REPORT INFORMATION
  Report Type: 
  Country: None (occurrence: None)
  Receive Date: 20111201
  Receipt Date: 20111116
  Transmission Date: 20120403
  Serious: Yes (Hospitalization)
  Sender: FDA-Public Use
  Company Number: PHHY2011DE66944

PATIENT
  Sex: Male
  Weight: 68 kg

DRUGS (3)
  1. TASIGNA [Suspect]
     Dosage: 200 MG, BID
     Route: 048
     Dates: start: 20110506, end: 20110518
  2. TASIGNA [Suspect]
     Dosage: 200 MG, TID
     Route: 048
     Dates: start: 20110518, end: 20111024
  3. TASIGNA [Suspect]
     Dosage: 400 MG, BID
     Route: 048
     Dates: start: 20110120, end: 20110429

REACTIONS (4)
  - VENTRICULAR FIBRILLATION [None]
  - TACHYCARDIA [None]
  - MYOCARDIAL INFARCTION [None]
  - HYPERSENSITIVITY [None]
